FAERS Safety Report 15821334 (Version 1)
Quarter: 2019Q1

REPORT INFORMATION
  Report Type: Spontaneous
  Country: US (occurrence: US)
  Receive Date: 20190114
  Receipt Date: 20190114
  Transmission Date: 20190417
  Serious: Yes (Hospitalization)
  Sender: FDA-Public Use
  Company Number: US-PFIZER INC-2019015268

PATIENT
  Age: 73 Year
  Sex: Male

DRUGS (2)
  1. TIKOSYN [Suspect]
     Active Substance: DOFETILIDE
     Indication: ATRIAL FIBRILLATION
     Dosage: 750 MCG, DAILY (2 PILLS IN MORNING AROUND 6:30 AM AND 1 PILL IN EVENING AT SUPPER)
     Route: 048
     Dates: start: 201808, end: 2018
  2. TIKOSYN [Suspect]
     Active Substance: DOFETILIDE
     Indication: CARDIOMYOPATHY

REACTIONS (6)
  - Wound [Unknown]
  - Calcinosis [Unknown]
  - Skin lesion [Unknown]
  - Chondropathy [Unknown]
  - Heart rate decreased [Recovered/Resolved]
  - Skin ulcer [Unknown]
